FAERS Safety Report 25237133 (Version 2)
Quarter: 2025Q2

REPORT INFORMATION
  Report Type: Spontaneous
  Country: DE (occurrence: DE)
  Receive Date: 20250425
  Receipt Date: 20250529
  Transmission Date: 20250716
  Serious: Yes (Hospitalization, Other)
  Sender: AMGEN
  Company Number: DE-BEH-2025202483

PATIENT
  Age: 83 Year
  Sex: Female
  Weight: 65 kg

DRUGS (22)
  1. TAVNEOS [Suspect]
     Active Substance: AVACOPAN
     Indication: Anti-neutrophil cytoplasmic antibody positive vasculitis
     Route: 048
     Dates: start: 20250125, end: 202504
  2. TAVNEOS [Suspect]
     Active Substance: AVACOPAN
     Route: 048
     Dates: start: 2025
  3. DARBEPOETIN ALFA [Concomitant]
     Active Substance: DARBEPOETIN ALFA
     Indication: Product used for unknown indication
     Route: 065
  4. RITUXIMAB [Concomitant]
     Active Substance: RITUXIMAB
  5. CYCLOPHOSPHAMIDE [Concomitant]
     Active Substance: CYCLOPHOSPHAMIDE
     Route: 048
  6. PREDNISONE [Concomitant]
     Active Substance: PREDNISONE
  7. ATORVASTATIN [Concomitant]
     Active Substance: ATORVASTATIN
  8. RAMIPRIL [Concomitant]
     Active Substance: RAMIPRIL
  9. APIXABAN [Concomitant]
     Active Substance: APIXABAN
  10. AMLODIPINE [Concomitant]
     Active Substance: AMLODIPINE BESYLATE
  11. POTASSIUM CHLORIDE [Concomitant]
     Active Substance: POTASSIUM CHLORIDE
  12. SODIUM BICARBONATE [Concomitant]
     Active Substance: SODIUM BICARBONATE
  13. LEVOTHYROXINE [Concomitant]
     Active Substance: LEVOTHYROXINE
  14. DIGITOXIN [Concomitant]
     Active Substance: DIGITOXIN
  15. FUROSEMIDE [Concomitant]
     Active Substance: FUROSEMIDE
  16. PREDNISOLONE [Concomitant]
     Active Substance: PREDNISOLONE
  17. XIPAMIDE [Concomitant]
     Active Substance: XIPAMIDE
  18. BISOPROLOL [Concomitant]
     Active Substance: BISOPROLOL
  19. PANTOPRAZOLE [Concomitant]
     Active Substance: PANTOPRAZOLE
     Dates: end: 202504
  20. CHOLECALCIFEROL [Concomitant]
     Active Substance: CHOLECALCIFEROL
  21. SEVELAMER [Concomitant]
     Active Substance: SEVELAMER
  22. SULFAMETHOXAZOLE AND TRIMETHOPRIM [Concomitant]
     Active Substance: SULFAMETHOXAZOLE\TRIMETHOPRIM
     Dates: end: 202504

REACTIONS (5)
  - Leukopenia [Recovered/Resolved]
  - Neutrophil count decreased [Recovered/Resolved]
  - Leukopenia [Unknown]
  - Neutropenia [Unknown]
  - Lymphopenia [Unknown]

NARRATIVE: CASE EVENT DATE: 20250101
